FAERS Safety Report 4315030-8 (Version None)
Quarter: 2004Q1

REPORT INFORMATION
  Report Type: 
  Country: None (occurrence: None)
  Receive Date: 20040309
  Receipt Date: 20040224
  Transmission Date: 20041129
  Serious: Yes (Life-Threatening, Disabling)
  Sender: FDA-Public Use
  Company Number: EWC040238179

PATIENT
  Age: 57 Year
  Sex: Female
  Weight: 56 kg

DRUGS (1)
  1. OPTRUMA (RALOXIFENE HYDROCHLORIDE) [Suspect]
     Dosage: 60 M/1 DAY
     Dates: start: 20001031

REACTIONS (1)
  - AMAUROSIS [None]
